FAERS Safety Report 9129767 (Version 1)
Quarter: 2013Q1

REPORT INFORMATION
  Report Type: Spontaneous
  Country: JP (occurrence: JP)
  Receive Date: 20130125
  Receipt Date: 20130125
  Transmission Date: 20140127
  Serious: Yes (Hospitalization)
  Sender: FDA-Public Use
  Company Number: JP-ROCHE-1182125

PATIENT
  Age: 54 Year
  Sex: Male

DRUGS (6)
  1. RITUXIMAB [Suspect]
     Indication: LYMPHOMA
     Route: 065
  2. CYCLOPHOSPHAMIDE [Concomitant]
     Indication: LYMPHOMA
     Route: 065
  3. DOXORUBICIN HYDROCHLORIDE [Concomitant]
     Indication: LYMPHOMA
     Route: 065
  4. VINCRISTINE SULFATE [Concomitant]
     Indication: LYMPHOMA
     Route: 065
  5. PREDNISOLONE [Concomitant]
     Indication: LYMPHOMA
     Route: 065
  6. ENTECAVIR [Concomitant]
     Indication: HEPATITIS B SURFACE ANTIBODY POSITIVE
     Route: 065

REACTIONS (1)
  - HIV infection [Unknown]
